FAERS Safety Report 9853288 (Version 1)
Quarter: 2014Q1

REPORT INFORMATION
  Report Type: Spontaneous
  Country: CA (occurrence: None)
  Receive Date: 20140127
  Receipt Date: 20140127
  Transmission Date: 20141002
  Serious: Yes (Other)
  Sender: FDA-Public Use
  Company Number: DSU-2014-00099

PATIENT
  Age: 64 Year
  Sex: Female
  Weight: 38.1 kg

DRUGS (6)
  1. OLMETEC (OLMESARTAN MEDOXOMIL) (TABLET) (OLMESARTAN MEDOXOMIL) [Suspect]
     Indication: PRODUCT USED FOR UNKNOWN INDICATION
     Route: 048
  2. DIFLUCAN (FLUCONAZOLE) (FLUCONAZOLE) [Concomitant]
  3. LORAZEPAM (LORAZEPAM) (LORAZEPAM) [Concomitant]
  4. LOSEC (OMEPRAZOLE) (OMEPRAZOLE) [Concomitant]
  5. PREMARIN (ESTROGENS CONJUGATED) (ESTORGENS CONJUGATED) [Concomitant]
  6. SYNTHROID (LEVOTHYROXINE SODIUM) (LEVOTHYROXINE SODIUM) [Concomitant]

REACTIONS (9)
  - Angioedema [None]
  - Dysphagia [None]
  - Lip swelling [None]
  - Oedema mouth [None]
  - Pharyngeal oedema [None]
  - Pruritus [None]
  - Swelling [None]
  - Swollen tongue [None]
  - Urticaria [None]
